FAERS Safety Report 5503736-4 (Version None)
Quarter: 2007Q4

REPORT INFORMATION
  Report Type: 
  Country: None (occurrence: None)
  Receive Date: 20071030
  Receipt Date: 20071030
  Transmission Date: 20080405
  Serious: Yes (Other)
  Sender: FDA-Public Use
  Company Number: None

PATIENT
  Sex: Male
  Weight: 68.4024 kg

DRUGS (1)
  1. LOTREL [Suspect]
     Indication: HYPERTENSION
     Dosage: 10/20 1 DAILY ORAL
     Route: 048

REACTIONS (5)
  - ABNORMAL DREAMS [None]
  - BACK PAIN [None]
  - BLOOD PRESSURE INCREASED [None]
  - CHEST PAIN [None]
  - DRUG HYPERSENSITIVITY [None]
